FAERS Safety Report 4441325-3 (Version None)
Quarter: 2004Q3

REPORT INFORMATION
  Report Type: 
  Country: None (occurrence: None)
  Receive Date: 20040728
  Receipt Date: 20040326
  Transmission Date: 20050211
  Serious: No
  Sender: FDA-Public Use
  Company Number: USA040363324

PATIENT
  Age: 32 Year
  Sex: Female
  Weight: 52 kg

DRUGS (3)
  1. STRATTERA [Suspect]
     Dosage: 40 MG/2 DAY
     Dates: start: 20040101
  2. ADDERALL 10 [Concomitant]
  3. FLUOXETINE HCL [Concomitant]

REACTIONS (3)
  - ANXIETY [None]
  - ERYTHEMA [None]
  - WEIGHT DECREASED [None]
